FAERS Safety Report 11130444 (Version 2)
Quarter: 2015Q2

REPORT INFORMATION
  Report Type: Report from Study
  Country: JP (occurrence: JP)
  Receive Date: 20150522
  Receipt Date: 20150624
  Transmission Date: 20150821
  Serious: Yes (Hospitalization)
  Sender: FDA-Public Use
  Company Number: JP-ROCHE-1581369

PATIENT
  Age: 82 Year
  Sex: Female

DRUGS (16)
  1. METHOXY POLYETHYLENE GLYCOL-EPOETIN BETA [Suspect]
     Active Substance: METHOXY POLYETHYLENE GLYCOL-EPOETIN BETA
     Indication: NEPHROGENIC ANAEMIA
     Dosage: MOST RECENT DOSE RECEIVED ON 12/NOV/2013
     Route: 058
     Dates: start: 20130820
  2. THYRADIN-S [Concomitant]
     Active Substance: LEVOTHYROXINE
     Route: 048
  3. ARGAMATE [Concomitant]
     Active Substance: POLYSTYRENE
     Route: 048
  4. METHOXY POLYETHYLENE GLYCOL-EPOETIN BETA [Suspect]
     Active Substance: METHOXY POLYETHYLENE GLYCOL-EPOETIN BETA
     Indication: NEPHROGENIC ANAEMIA
     Route: 058
     Dates: start: 20130514, end: 20130514
  5. LASIX [Concomitant]
     Active Substance: FUROSEMIDE
     Route: 048
  6. BENZALIN (JAPAN) [Concomitant]
     Route: 048
  7. TAKEPRON [Concomitant]
     Active Substance: LANSOPRAZOLE
     Route: 048
  8. ALDACTONE [Concomitant]
     Active Substance: SPIRONOLACTONE
     Route: 048
  9. ALOSITOL [Concomitant]
     Active Substance: ALLOPURINOL
     Route: 048
  10. NESP [Concomitant]
     Active Substance: DARBEPOETIN ALFA
     Indication: NEPHROSCLEROSIS
     Dosage: ONLY ONCE
     Route: 058
     Dates: start: 20130722, end: 20130722
  11. NORVASC [Concomitant]
     Active Substance: AMLODIPINE BESYLATE
     Route: 048
  12. OLMETEC [Concomitant]
     Active Substance: OLMESARTAN MEDOXOMIL
     Route: 048
  13. SAMSCA [Concomitant]
     Active Substance: TOLVAPTAN
     Route: 048
  14. BAYASPIRIN [Concomitant]
     Active Substance: ASPIRIN
     Route: 048
  15. HUMALOG MIX [Concomitant]
     Active Substance: INSULIN LISPRO
     Route: 058
  16. LENDORMIN D [Concomitant]
     Active Substance: BROTIZOLAM
     Route: 048

REACTIONS (3)
  - Hypophagia [Unknown]
  - Cerebral infarction [Recovering/Resolving]
  - Hyponatraemia [Recovered/Resolved]

NARRATIVE: CASE EVENT DATE: 20130518
